APPROVED DRUG PRODUCT: FENTANYL-87
Active Ingredient: FENTANYL
Strength: 87.5MCG/HR
Dosage Form/Route: FILM, EXTENDED RELEASE;TRANSDERMAL
Application: A076258 | Product #008 | TE Code: AB
Applicant: MYLAN TECHNOLOGIES INC
Approved: Dec 29, 2014 | RLD: No | RS: No | Type: RX